FAERS Safety Report 4894614-2 (Version None)
Quarter: 2006Q1

REPORT INFORMATION
  Report Type: 
  Country: None (occurrence: None)
  Receive Date: 20060127
  Receipt Date: 20060118
  Transmission Date: 20060701
  Serious: Yes (Hospitalization)
  Sender: FDA-Public Use
  Company Number: US-MERCK-0601USA02438

PATIENT
  Age: 73 Year
  Sex: Female
  Weight: 92 kg

DRUGS (10)
  1. VIOXX [Suspect]
     Indication: OSTEOARTHRITIS
     Route: 048
     Dates: end: 20031101
  2. VIOXX [Suspect]
     Indication: PAIN
     Route: 048
     Dates: end: 20031101
  3. INSULIN [Concomitant]
     Route: 058
  4. INSULIN [Concomitant]
     Route: 058
  5. HYDROCHLOROTHIAZIDE [Concomitant]
     Route: 065
  6. LIPITOR [Concomitant]
     Route: 065
  7. PRINIVIL [Concomitant]
     Route: 048
  8. CATAPRES [Concomitant]
     Route: 065
     Dates: end: 20020901
  9. LOVENOX [Concomitant]
     Route: 065
  10. PROTONIX [Concomitant]
     Route: 065

REACTIONS (19)
  - ABDOMINAL PAIN [None]
  - BACK PAIN [None]
  - BRADYARRHYTHMIA [None]
  - CEREBROVASCULAR ACCIDENT [None]
  - CHEST PAIN [None]
  - COUGH [None]
  - DEPRESSION [None]
  - DIVERTICULITIS [None]
  - DYSPNOEA [None]
  - EAR PAIN [None]
  - EYE PAIN [None]
  - FALL [None]
  - FATIGUE [None]
  - HEAD INJURY [None]
  - HEMIPARESIS [None]
  - OEDEMA PERIPHERAL [None]
  - PAIN IN JAW [None]
  - PYREXIA [None]
  - TREMOR [None]
